FAERS Safety Report 4439555-X (Version None)
Quarter: 2004Q3

REPORT INFORMATION
  Report Type: 
  Country: None (occurrence: None)
  Receive Date: 20040830
  Receipt Date: 20040816
  Transmission Date: 20050211
  Serious: Yes (Other)
  Sender: FDA-Public Use
  Company Number: HQWYE348917AUG04

PATIENT
  Age: 55 Year
  Sex: Male

DRUGS (4)
  1. ETODOLAC [Suspect]
     Route: 048
     Dates: start: 20040728, end: 20040808
  2. MARZULENE (SODIUM GUALENATE, ) [Suspect]
     Route: 048
     Dates: start: 20040101
  3. MYONAL (EPERISONE HYDROCHLORIDE, ) [Suspect]
     Route: 048
     Dates: start: 20040728, end: 20040808
  4. VOLTAREN [Suspect]
     Route: 054
     Dates: start: 20040728, end: 20040731

REACTIONS (3)
  - DRUG ERUPTION [None]
  - SWELLING FACE [None]
  - URTICARIA [None]
